FAERS Safety Report 7275626-0 (Version None)
Quarter: 2011Q1

REPORT INFORMATION
  Report Type: 
  Country: None (occurrence: None)
  Receive Date: 20110202
  Receipt Date: 20110202
  Transmission Date: 20110831
  Serious: Yes (Other)
  Sender: FDA-Public Use
  Company Number: None

PATIENT
  Age: 42 Year
  Sex: Female
  Weight: 71.6683 kg

DRUGS (1)
  1. TRIAD ALCOHOL PREP PADS TRIAD [Suspect]
     Indication: MULTIPLE SCLEROSIS
     Dosage: EVERY 48 HOURS SQ
     Route: 058
     Dates: start: 20060102, end: 20101207

REACTIONS (6)
  - INJECTION SITE ANAESTHESIA [None]
  - INJECTION SITE ERYTHEMA [None]
  - INJECTION SITE PAIN [None]
  - GAIT DISTURBANCE [None]
  - INJECTION SITE DISCOLOURATION [None]
  - INJECTION SITE MASS [None]
